FAERS Safety Report 4349497-6 (Version None)
Quarter: 2004Q2

REPORT INFORMATION
  Report Type: 
  Country: None (occurrence: None)
  Receive Date: 20040426
  Receipt Date: 20040412
  Transmission Date: 20050107
  Serious: Yes (Other)
  Sender: FDA-Public Use
  Company Number: US-JNJFOC-20040403102

PATIENT
  Age: 31 Year
  Sex: Male

DRUGS (1)
  1. DURAGESIC [Suspect]
     Dosage: 75 UG/HR, 1 IN 72 HOUR
     Dates: start: 20030921, end: 20040127

REACTIONS (1)
  - CARDIAC ARREST [None]
